FAERS Safety Report 17803736 (Version 1)
Quarter: 2020Q2

REPORT INFORMATION
  Report Type: Spontaneous
  Country: CA (occurrence: CA)
  Receive Date: 20200519
  Receipt Date: 20200519
  Transmission Date: 20200714
  Serious: Yes (Other)
  Sender: FDA-Public Use
  Company Number: CA-TEVA-2020-CA-1237525

PATIENT
  Age: 31 Year
  Sex: Female

DRUGS (2)
  1. INFLECTRA [Suspect]
     Active Substance: INFLIXIMAB-DYYB
     Indication: COLITIS ULCERATIVE
     Dosage: 2, 6 WEEKS, THEN EVERY 8 WEEKS
     Route: 042
     Dates: start: 20200504
  2. PREDNISONE. [Suspect]
     Active Substance: PREDNISONE
     Route: 042
     Dates: start: 202005

REACTIONS (12)
  - Diarrhoea haemorrhagic [Unknown]
  - Haematochezia [Unknown]
  - Rectal haemorrhage [Unknown]
  - Weight decreased [Recovered/Resolved]
  - Fatigue [Unknown]
  - Bowel movement irregularity [Unknown]
  - Weight increased [Unknown]
  - Defaecation urgency [Unknown]
  - Increased appetite [Unknown]
  - Colitis ulcerative [Unknown]
  - Heart rate decreased [Unknown]
  - Abdominal pain [Unknown]

NARRATIVE: CASE EVENT DATE: 2020
